FAERS Safety Report 4441652-X (Version None)
Quarter: 2004Q3

REPORT INFORMATION
  Report Type: 
  Country: None (occurrence: None)
  Receive Date: 20040907
  Receipt Date: 20040825
  Transmission Date: 20050211
  Serious: Yes (Hospitalization)
  Sender: FDA-Public Use
  Company Number: US-AMGEN-US088494

PATIENT
  Sex: Male
  Weight: 44.5 kg

DRUGS (2)
  1. ETANERCEPT [Suspect]
     Indication: GRAFT VERSUS HOST DISEASE
     Dates: start: 20040806
  2. CORTICOSTEROID NOS [Concomitant]

REACTIONS (7)
  - BENIGN INTRACRANIAL HYPERTENSION [None]
  - CEREBRAL VENOUS THROMBOSIS [None]
  - FAECAL VOLUME INCREASED [None]
  - MENINGITIS ASEPTIC [None]
  - MENINGITIS CHEMICAL [None]
  - PAPILLOEDEMA [None]
  - THERAPEUTIC AGENT TOXICITY [None]
